FAERS Safety Report 8297734-8 (Version None)
Quarter: 2012Q1

REPORT INFORMATION
  Report Type: 
  Country: None (occurrence: None)
  Receive Date: 20120323
  Receipt Date: 20101207
  Transmission Date: 20120608
  Serious: Yes (Hospitalization)
  Sender: FDA-Public Use
  Company Number: PHHY2010US67503

PATIENT
  Age: 44 Year
  Sex: Female

DRUGS (1)
  1. TOBI [Suspect]
     Dosage: 300 MG, BID
     Dates: end: 20100701

REACTIONS (1)
  - PNEUMONIA [None]
